FAERS Safety Report 23860129 (Version 2)
Quarter: 2024Q2

REPORT INFORMATION
  Report Type: Spontaneous
  Country: US (occurrence: US)
  Receive Date: 20240515
  Receipt Date: 20240614
  Transmission Date: 20240716
  Serious: Yes (Other)
  Sender: FDA-Public Use
  Company Number: US-HLS-202400145

PATIENT
  Sex: Male

DRUGS (1)
  1. CLOZARIL [Suspect]
     Active Substance: CLOZAPINE
     Indication: Product used for unknown indication
     Dosage: TAKING CLOZARIL SINCE 29 YEARS
     Route: 065

REACTIONS (4)
  - Nasopharyngitis [Unknown]
  - Viral infection [Unknown]
  - Mycoplasma infection [Unknown]
  - Neutropenia [Unknown]
